FAERS Safety Report 5473905-0 (Version None)
Quarter: 2007Q3

REPORT INFORMATION
  Report Type: 
  Country: None (occurrence: None)
  Receive Date: 20070831
  Receipt Date: 20070417
  Transmission Date: 20080115
  Serious: No
  Sender: FDA-Public Use
  Company Number: 234354

PATIENT
  Age: 78 Year
  Sex: Female
  Weight: 67.1 kg

DRUGS (3)
  1. LUCENTIS [Suspect]
     Indication: MACULAR DEGENERATION
     Dosage: INTRAVITREAL
     Dates: start: 20060701
  2. FOSAMAX [Concomitant]
  3. LIPITOR [Concomitant]

REACTIONS (3)
  - FATIGUE [None]
  - PAIN [None]
  - TINNITUS [None]
